FAERS Safety Report 9835052 (Version 1)
Quarter: 2014Q1

REPORT INFORMATION
  Report Type: Spontaneous
  Country: US (occurrence: US)
  Receive Date: 20140122
  Receipt Date: 20140122
  Transmission Date: 20141002
  Serious: No
  Sender: FDA-Public Use
  Company Number: US-BAYER-2014-007406

PATIENT
  Age: 63 Year
  Sex: Female
  Weight: 49.44 kg

DRUGS (2)
  1. BAYER ASPIRIN REGIMEN ADULT LOW STRENGTH [Suspect]
     Indication: PYREXIA
     Dosage: 1 DF, PRN
     Route: 048
  2. METHOTREXATE [Concomitant]
     Route: 048

REACTIONS (1)
  - Off label use [None]
